FAERS Safety Report 10701406 (Version 2)
Quarter: 2015Q1

REPORT INFORMATION
  Report Type: Spontaneous
  Country: US (occurrence: US)
  Receive Date: 20150109
  Receipt Date: 20150112
  Transmission Date: 20150721
  Serious: Yes (Death)
  Sender: FDA-Public Use
  Company Number: US-PFIZER INC-2015006843

PATIENT
  Age: 35 Year
  Sex: Male

DRUGS (2)
  1. HYDROCODONE [Suspect]
     Active Substance: HYDROCODONE
     Dosage: UNK
     Route: 048
  2. ALPRAZOLAM. [Suspect]
     Active Substance: ALPRAZOLAM
     Dosage: UNK
     Route: 048

REACTIONS (3)
  - Cardiac arrest [Fatal]
  - Respiratory arrest [Fatal]
  - Death [Fatal]

NARRATIVE: CASE EVENT DATE: 2013
